FAERS Safety Report 4398321-4 (Version None)
Quarter: 2004Q2

REPORT INFORMATION
  Report Type: 
  Country: None (occurrence: None)
  Receive Date: 20040621
  Receipt Date: 20040114
  Transmission Date: 20050107
  Serious: Yes (Other)
  Sender: FDA-Public Use
  Company Number: USA-2004-0012476

PATIENT
  Age: 13 Year
  Sex: Male
  Weight: 63.5 kg

DRUGS (6)
  1. OXYCONTIN [Suspect]
     Dosage: 160 MG, NASAL
     Route: 045
  2. MARIJUANA [Concomitant]
  3. KLONOPIN [Concomitant]
  4. XANAX [Concomitant]
  5. COCAINE [Concomitant]
  6. ALCOHOL [Concomitant]

REACTIONS (1)
  - DRUG ABUSER [None]
